FAERS Safety Report 6816492-4 (Version None)
Quarter: 2010Q3

REPORT INFORMATION
  Report Type: 
  Country: None (occurrence: None)
  Receive Date: 20100705
  Receipt Date: 20100622
  Transmission Date: 20110219
  Serious: Yes (Other)
  Sender: FDA-Public Use
  Company Number: PHEH2010US03469

PATIENT
  Sex: Female

DRUGS (1)
  1. LOPRESSOR [Suspect]

REACTIONS (3)
  - ALOPECIA [None]
  - EMOTIONAL DISTRESS [None]
  - INJURY [None]
